FAERS Safety Report 18679209 (Version 2)
Quarter: 2021Q1

REPORT INFORMATION
  Report Type: Report from Study
  Country: CO (occurrence: CO)
  Receive Date: 20201230
  Receipt Date: 20210112
  Transmission Date: 20210419
  Serious: Yes (Other)
  Sender: FDA-Public Use
  Company Number: CO-REGENERON PHARMACEUTICALS, INC.-2020-73740

PATIENT

DRUGS (8)
  1. EYLEA [Suspect]
     Active Substance: AFLIBERCEPT
     Dosage: 1 DF, QD; RIGHT EYE
     Route: 031
     Dates: start: 20200820, end: 20200820
  2. EYLEA [Suspect]
     Active Substance: AFLIBERCEPT
     Dosage: 1 DF, QD; RIGHT EYE
     Route: 031
     Dates: start: 20200714, end: 20200714
  3. EYLEA [Suspect]
     Active Substance: AFLIBERCEPT
     Indication: DIABETIC RETINAL OEDEMA
     Dosage: 1 DF, Q1MON
     Route: 031
     Dates: start: 20180830
  4. EYLEA [Suspect]
     Active Substance: AFLIBERCEPT
     Dosage: 1 DF, QD; RIGHT EYE
     Route: 031
     Dates: start: 20190927, end: 20190927
  5. EYLEA [Suspect]
     Active Substance: AFLIBERCEPT
     Dosage: 1 DF, QD; RIGHT EYE
     Route: 031
     Dates: start: 20201119, end: 20201119
  6. EYLEA [Suspect]
     Active Substance: AFLIBERCEPT
     Dosage: 1 DF, QD; RIGHT EYE
     Route: 031
     Dates: start: 20200917, end: 20200917
  7. EYLEA [Suspect]
     Active Substance: AFLIBERCEPT
     Dosage: 1 DF, QD; RIGHT EYE
     Route: 031
     Dates: start: 20191025, end: 20191025
  8. EYLEA [Suspect]
     Active Substance: AFLIBERCEPT
     Dosage: 1 DF, QD; RIGHT EYE
     Route: 031
     Dates: start: 20190830, end: 20190830

REACTIONS (2)
  - Vitreous haemorrhage [Not Recovered/Not Resolved]
  - Cataract [Not Recovered/Not Resolved]

NARRATIVE: CASE EVENT DATE: 2018
